FAERS Safety Report 8231095-5 (Version None)
Quarter: 2012Q1

REPORT INFORMATION
  Report Type: 
  Country: None (occurrence: None)
  Receive Date: 20120322
  Receipt Date: 20120322
  Transmission Date: 20120608
  Serious: Yes (Life-Threatening, Hospitalization)
  Sender: FDA-Public Use
  Company Number: None

PATIENT
  Sex: Male
  Weight: 68.038 kg

DRUGS (2)
  1. GABAPENTIN [Suspect]
  2. GABAPENTIN [Suspect]

REACTIONS (4)
  - CONTUSION [None]
  - LACERATION [None]
  - FALL [None]
  - CONVULSION [None]
